FAERS Safety Report 6976821-8 (Version None)
Quarter: 2010Q3

REPORT INFORMATION
  Report Type: 
  Country: None (occurrence: None)
  Receive Date: 20100910
  Receipt Date: 20100903
  Transmission Date: 20110219
  Serious: Yes (Death, Other)
  Sender: FDA-Public Use
  Company Number: A0854904B

PATIENT
  Sex: Female

DRUGS (5)
  1. EPIVIR [Suspect]
     Indication: ANTIVIRAL TREATMENT
     Dosage: 25MGD PER DAY
     Dates: start: 20070801
  2. ZIAGEN [Suspect]
     Indication: ANTIVIRAL TREATMENT
     Dosage: 600MGD PER DAY
     Dates: start: 20090808
  3. KALETRA [Suspect]
     Indication: ANTIVIRAL TREATMENT
     Dosage: 4TAB PER DAY
     Dates: start: 20060619
  4. TRUVADA [Suspect]
     Indication: ANTIVIRAL TREATMENT
  5. VIREAD [Suspect]
     Indication: ANTIVIRAL TREATMENT
     Dosage: 43MGD PER DAY
     Dates: end: 20090807

REACTIONS (3)
  - DEATH NEONATAL [None]
  - DRUG EXPOSURE DURING PREGNANCY [None]
  - PREMATURE BABY [None]
